FAERS Safety Report 9283966 (Version 1)
Quarter: 2013Q2

REPORT INFORMATION
  Report Type: Spontaneous
  Country: CA (occurrence: CA)
  Receive Date: 20130510
  Receipt Date: 20130510
  Transmission Date: 20140414
  Serious: Yes (Death)
  Sender: FDA-Public Use
  Company Number: CA-TEVA-404400USA

PATIENT
  Age: 60 Year
  Sex: Female

DRUGS (7)
  1. BUPROPION [Suspect]
     Dosage: EXTENDED RELEASE
     Route: 065
  2. DOXEPIN [Suspect]
     Route: 065
  3. DIAZEPAM [Suspect]
     Route: 065
  4. CHLORPROMAZINE [Concomitant]
  5. GABAPENTIN [Concomitant]
  6. GLICLAZIDE [Concomitant]
  7. TOPIRAMATE [Concomitant]

REACTIONS (2)
  - Choking [Fatal]
  - Drug level above therapeutic [Fatal]
